FAERS Safety Report 5885130-X (Version None)
Quarter: 2008Q3

REPORT INFORMATION
  Report Type: 
  Country: None (occurrence: None)
  Receive Date: 20080912
  Receipt Date: 20080829
  Transmission Date: 20090109
  Serious: Yes (Other)
  Sender: FDA-Public Use
  Company Number: 2008S1015842

PATIENT
  Age: 77 Year
  Sex: Female
  Weight: 79.3795 kg

DRUGS (7)
  1. ALPRAZOLAM [Suspect]
     Indication: ANXIETY
     Dosage: MG;AS NEEDED;ORAL;MG;4 TIMES A DAY;ORAL
     Route: 048
     Dates: start: 19980101, end: 20080101
  2. ALPRAZOLAM [Suspect]
     Indication: ANXIETY
     Dosage: MG;AS NEEDED;ORAL;MG;4 TIMES A DAY;ORAL
     Route: 048
     Dates: start: 20080101
  3. CLORAZEPATE DIPOTASSIUM TABLETS, USP (3.75 MG) [Suspect]
     Indication: ANXIETY
     Dosage: 1.875 MG;X1;ORAL
     Route: 048
     Dates: start: 20080701, end: 20080701
  4. NORVASC [Concomitant]
  5. ASPIRIN [Concomitant]
  6. VITAMIN TAB [Concomitant]
  7. ENALAPRIL MALEATE [Concomitant]

REACTIONS (8)
  - ANXIETY [None]
  - BLOOD PRESSURE INCREASED [None]
  - CONDITION AGGRAVATED [None]
  - DEATH OF RELATIVE [None]
  - DYSGEUSIA [None]
  - HEART RATE INCREASED [None]
  - MALAISE [None]
  - PHARMACEUTICAL PRODUCT COMPLAINT [None]
